FAERS Safety Report 7178417-4 (Version None)
Quarter: 2010Q4

REPORT INFORMATION
  Report Type: 
  Country: None (occurrence: None)
  Receive Date: 20101220
  Receipt Date: 20101209
  Transmission Date: 20110411
  Serious: Yes (Hospitalization)
  Sender: FDA-Public Use
  Company Number: US-ASTRAZENECA-2010SE58681

PATIENT
  Age: 8 Year
  Sex: Female

DRUGS (5)
  1. SEROQUEL [Suspect]
     Indication: AGGRESSION
     Route: 048
     Dates: start: 20100101, end: 20100101
  2. COGENTIN [Concomitant]
     Dosage: TWICE A DAY
  3. CLONIDINE [Concomitant]
     Indication: TARDIVE DYSKINESIA
     Dosage: DAILY
  4. ZYPREXA [Concomitant]
  5. GEODON [Concomitant]

REACTIONS (1)
  - TARDIVE DYSKINESIA [None]
